FAERS Safety Report 6543989-7 (Version None)
Quarter: 2010Q1

REPORT INFORMATION
  Report Type: 
  Country: None (occurrence: None)
  Receive Date: 20100120
  Receipt Date: 20100113
  Transmission Date: 20100710
  Serious: Yes (Hospitalization, Other)
  Sender: FDA-Public Use
  Company Number: US-AMGEN-KDL385771

PATIENT
  Sex: Female
  Weight: 64.5 kg

DRUGS (8)
  1. PROCRIT [Suspect]
     Indication: ANAEMIA
     Route: 058
     Dates: start: 20090101
  2. COZAAR [Concomitant]
  3. ATIVAN [Concomitant]
  4. CALCIUM [Concomitant]
  5. PREDNISONE [Concomitant]
  6. INSULIN [Concomitant]
  7. FOLIC ACID [Concomitant]
  8. UNSPECIFIED MEDICATION [Concomitant]

REACTIONS (3)
  - APLASIA PURE RED CELL [None]
  - HOSPITALISATION [None]
  - WHITE BLOOD CELL COUNT INCREASED [None]
